FAERS Safety Report 24703911 (Version 4)
Quarter: 2025Q4

REPORT INFORMATION
  Report Type: Spontaneous
  Country: US (occurrence: US)
  Receive Date: 20241206
  Receipt Date: 20251229
  Transmission Date: 20260117
  Serious: No
  Sender: SANOFI AVENTIS
  Company Number: US-SA-2024SA301058

PATIENT
  Age: 20 Month
  Sex: Female

DRUGS (2)
  1. DUPIXENT [Suspect]
     Active Substance: DUPILUMAB
     Indication: Eczema
     Dosage: 200 MG, Q4W
     Route: 058
     Dates: start: 20240910, end: 202504
  2. DUPIXENT [Suspect]
     Active Substance: DUPILUMAB
     Indication: Dermatitis atopic
     Dosage: 200 MG, Q4W
     Route: 058
     Dates: start: 2025

REACTIONS (5)
  - Scratch [Unknown]
  - Pruritus [Unknown]
  - Rash [Unknown]
  - Dermatitis atopic [Recovered/Resolved]
  - Dry skin [Recovered/Resolved]

NARRATIVE: CASE EVENT DATE: 20240101
